FAERS Safety Report 10203601 (Version 1)
Quarter: 2014Q2

REPORT INFORMATION
  Report Type: Spontaneous
  Country: US (occurrence: US)
  Receive Date: 20140529
  Receipt Date: 20140529
  Transmission Date: 20141212
  Serious: No
  Sender: FDA-Public Use
  Company Number: US-BAYER-2014-079176

PATIENT
  Sex: Female

DRUGS (2)
  1. BETASERON [Suspect]
     Dosage: 0.25 MG, QOD
     Route: 058
  2. VITAMIN D NOS [Concomitant]
     Dosage: UNK

REACTIONS (1)
  - Injection site pain [Unknown]
